FAERS Safety Report 8184478-6 (Version None)
Quarter: 2012Q1

REPORT INFORMATION
  Report Type: 
  Country: None (occurrence: None)
  Receive Date: 20120305
  Receipt Date: 20120301
  Transmission Date: 20120608
  Serious: Yes (Hospitalization, Disabling)
  Sender: FDA-Public Use
  Company Number: US-ROCHE-739891

PATIENT
  Sex: Female
  Weight: 74.7 kg

DRUGS (2)
  1. LAPATINIB [Suspect]
     Indication: BREAST CANCER
     Dosage: 1250 MG, QD
     Route: 048
     Dates: start: 20101015, end: 20101031
  2. XELODA [Suspect]
     Indication: BREAST CANCER
     Dosage: 900 MG, BID. THERAPY DURATION: 3 DOSES
     Route: 048
     Dates: start: 20101015, end: 20101028

REACTIONS (1)
  - AGITATION [None]
